FAERS Safety Report 15772383 (Version 1)
Quarter: 2018Q4

REPORT INFORMATION
  Report Type: Spontaneous
  Country: IN (occurrence: IN)
  Receive Date: 20181228
  Receipt Date: 20181228
  Transmission Date: 20190205
  Serious: Yes (Life-Threatening, Hospitalization, Other)
  Sender: FDA-Public Use
  Company Number: PHHY2018IN196792

PATIENT
  Age: 40 Year
  Sex: Male

DRUGS (3)
  1. BACLOFEN. [Concomitant]
     Active Substance: BACLOFEN
     Indication: PRODUCT USED FOR UNKNOWN INDICATION
     Route: 065
  2. CARBAMAZEPINE. [Suspect]
     Active Substance: CARBAMAZEPINE
     Indication: WITHDRAWAL SYNDROME
     Dosage: 200 MG, ONCE/SINGLE
     Route: 065
  3. THIAMINE. [Concomitant]
     Active Substance: THIAMINE
     Indication: PRODUCT USED FOR UNKNOWN INDICATION
     Route: 065

REACTIONS (9)
  - Pseudomonas infection [Recovering/Resolving]
  - Mucosal erosion [Recovering/Resolving]
  - Toxic epidermal necrolysis [Recovering/Resolving]
  - Pyrexia [Recovering/Resolving]
  - Dermatitis bullous [Recovering/Resolving]
  - Electrolyte imbalance [Recovering/Resolving]
  - Skin erosion [Recovering/Resolving]
  - Skin exfoliation [Recovering/Resolving]
  - Eyelid erosion [Recovering/Resolving]
